FAERS Safety Report 17553137 (Version 1)
Quarter: 2020Q1

REPORT INFORMATION
  Report Type: Report from Study
  Country: JP (occurrence: JP)
  Receive Date: 20200318
  Receipt Date: 20200318
  Transmission Date: 20200409
  Serious: Yes (Hospitalization)
  Sender: FDA-Public Use
  Company Number: JP-ROCHE-2566145

PATIENT
  Age: 71 Year
  Sex: Male

DRUGS (17)
  1. RITUXIMAB. [Suspect]
     Active Substance: RITUXIMAB
     Indication: DIFFUSE LARGE B-CELL LYMPHOMA
     Route: 041
     Dates: start: 20180521, end: 20180521
  2. BENDAMUSTINE HYDROCHLORIDE. [Suspect]
     Active Substance: BENDAMUSTINE HYDROCHLORIDE
     Route: 042
     Dates: start: 20180612, end: 20180613
  3. VILDAGLIPTIN [Concomitant]
     Active Substance: VILDAGLIPTIN
     Indication: DIABETES MELLITUS
     Route: 048
     Dates: start: 201609
  4. OBINUTUZUMAB. [Concomitant]
     Active Substance: OBINUTUZUMAB
     Route: 042
     Dates: start: 20180425
  5. PREDNISOLONE. [Concomitant]
     Active Substance: PREDNISOLONE
     Route: 065
     Dates: start: 20180716
  6. OBINUTUZUMAB. [Concomitant]
     Active Substance: OBINUTUZUMAB
     Route: 042
     Dates: start: 20180522
  7. BENDAMUSTINE HYDROCHLORIDE. [Suspect]
     Active Substance: BENDAMUSTINE HYDROCHLORIDE
     Indication: DIFFUSE LARGE B-CELL LYMPHOMA
     Route: 042
     Dates: start: 20180522, end: 20180523
  8. AMLODIPINE BESILATE [Concomitant]
     Active Substance: AMLODIPINE BESYLATE
     Indication: HYPERTENSION
     Route: 048
  9. ITRACONAZOLE. [Concomitant]
     Active Substance: ITRACONAZOLE
     Dosage: FOR INFECTION PROPHYLAXIS
     Route: 048
     Dates: start: 20180528
  10. PRAVASTATIN SODIUM. [Concomitant]
     Active Substance: PRAVASTATIN SODIUM
     Indication: DYSLIPIDAEMIA
     Route: 048
     Dates: start: 201609
  11. SULFAMETHOXAZOLE [Concomitant]
     Active Substance: SULFAMETHOXAZOLE
     Dosage: FOR INFECTION PROPHYLAXIS
     Route: 048
     Dates: start: 20180528
  12. ACICLOVIR [Concomitant]
     Active Substance: ACYCLOVIR
     Dosage: FOR INFECTION PROPHYLAXIS
     Route: 048
     Dates: start: 20180528
  13. RITUXIMAB. [Suspect]
     Active Substance: RITUXIMAB
     Route: 041
     Dates: start: 20180611, end: 20180611
  14. BENDAMUSTINE HYDROCHLORIDE. [Suspect]
     Active Substance: BENDAMUSTINE HYDROCHLORIDE
     Route: 042
     Dates: start: 20180717, end: 20180718
  15. SODIUM RABEPRAZOLE [Concomitant]
     Active Substance: RABEPRAZOLE SODIUM
     Indication: GASTRIC MUCOSAL LESION
     Route: 048
     Dates: start: 201609
  16. PREDNISOLONE. [Concomitant]
     Active Substance: PREDNISOLONE
     Route: 065
     Dates: start: 20180712
  17. OBINUTUZUMAB. [Concomitant]
     Active Substance: OBINUTUZUMAB
     Route: 042
     Dates: start: 20180717

REACTIONS (1)
  - VIth nerve paralysis [Recovering/Resolving]

NARRATIVE: CASE EVENT DATE: 20180709
